FAERS Safety Report 18528785 (Version 1)
Quarter: 2020Q4

REPORT INFORMATION
  Report Type: Spontaneous
  Country: US (occurrence: US)
  Receive Date: 20201120
  Receipt Date: 20201120
  Transmission Date: 20210114
  Serious: Yes (Hospitalization)
  Sender: FDA-Public Use
  Company Number: US-STRIDES ARCOLAB LIMITED-2020SP014374

PATIENT
  Age: 67 Year
  Sex: Female

DRUGS (4)
  1. HYDRALAZINE HCL [Suspect]
     Active Substance: HYDRALAZINE HYDROCHLORIDE
     Indication: PRODUCT USED FOR UNKNOWN INDICATION
     Dosage: 75 MILLIGRAM, TID
     Route: 048
  2. METOPROLOL. [Concomitant]
     Active Substance: METOPROLOL
     Indication: PRODUCT USED FOR UNKNOWN INDICATION
     Dosage: UNK
     Route: 065
  3. LEVOTHYROXINE. [Concomitant]
     Active Substance: LEVOTHYROXINE
     Indication: PRODUCT USED FOR UNKNOWN INDICATION
     Dosage: UNK
     Route: 065
  4. AMLODIPINE [Concomitant]
     Active Substance: AMLODIPINE BESYLATE
     Indication: PRODUCT USED FOR UNKNOWN INDICATION
     Dosage: UNK
     Route: 065

REACTIONS (17)
  - Bullous haemorrhagic dermatosis [Recovered/Resolved]
  - Respiratory rate decreased [Recovered/Resolved]
  - Pulmonary haemorrhage [Recovered/Resolved]
  - Asthenia [Recovered/Resolved]
  - Dyspnoea [Recovered/Resolved]
  - Bronchial oedema [Recovered/Resolved]
  - Lung infiltration [Recovered/Resolved]
  - Anti-neutrophil cytoplasmic antibody positive vasculitis [Recovered/Resolved]
  - Vasculitis necrotising [Recovered/Resolved]
  - Metaplasia [Recovered/Resolved]
  - Eschar [Recovered/Resolved]
  - Pleural effusion [Recovered/Resolved]
  - Periorbital oedema [Recovered/Resolved]
  - Pneumonitis [Recovered/Resolved]
  - Excessive granulation tissue [Recovered/Resolved]
  - Pulmonary necrosis [Recovered/Resolved]
  - Purpura [Recovered/Resolved]
